FAERS Safety Report 5207861-7 (Version None)
Quarter: 2007Q1

REPORT INFORMATION
  Report Type: 
  Country: None (occurrence: None)
  Receive Date: 20070112
  Receipt Date: 20070102
  Transmission Date: 20070707
  Serious: Yes (Other)
  Sender: FDA-Public Use
  Company Number: US-PFIZER INC-2007002264

PATIENT

DRUGS (1)
  1. NEURONTIN [Suspect]

REACTIONS (12)
  - AMNESIA [None]
  - ANXIETY [None]
  - COMA [None]
  - COMPULSIONS [None]
  - DELUSION [None]
  - DEPRESSION [None]
  - DIZZINESS [None]
  - FATIGUE [None]
  - IMPULSIVE BEHAVIOUR [None]
  - SUICIDAL IDEATION [None]
  - SUICIDE ATTEMPT [None]
  - WEIGHT INCREASED [None]
